FAERS Safety Report 21698257 (Version 3)
Quarter: 2023Q1

REPORT INFORMATION
  Report Type: Report from Study
  Country: US (occurrence: None)
  Receive Date: 20221208
  Receipt Date: 20230224
  Transmission Date: 20230417
  Serious: Yes (Death, Life-Threatening, Hospitalization)
  Sender: FDA-Public Use
  Company Number: 2022A190073

PATIENT
  Age: 27904 Day
  Sex: Male

DRUGS (13)
  1. DURVALUMAB [Suspect]
     Active Substance: DURVALUMAB
     Indication: Bladder cancer
     Dosage: 1500.0MG ONCE/SINGLE ADMINISTRATION
     Route: 042
     Dates: start: 20220413, end: 20220413
  2. TREMELIMUMAB [Suspect]
     Active Substance: TREMELIMUMAB
     Indication: Bladder cancer
     Dosage: 75.0MG ONCE/SINGLE ADMINISTRATION
     Route: 042
     Dates: start: 20210413, end: 20210413
  3. ENFORTUMAB VEDOTIN [Suspect]
     Active Substance: ENFORTUMAB VEDOTIN
     Indication: Bladder cancer
     Dosage: 1.25MG/KG ONCE/SINGLE ADMINISTRATION
     Route: 042
     Dates: start: 20210413, end: 20210413
  4. ENFORTUMAB VEDOTIN [Suspect]
     Active Substance: ENFORTUMAB VEDOTIN
     Indication: Bladder cancer
     Dosage: 1.25MG/KG ONCE/SINGLE ADMINISTRATION
     Route: 042
     Dates: start: 20210420, end: 20210420
  5. LIDOCAINE PRILOCATAINE [Concomitant]
     Indication: Pain prophylaxis
     Dosage: 1 APPLICATION AS REQUIRED
     Route: 061
     Dates: start: 202204
  6. ALBUTEROL [Concomitant]
     Active Substance: ALBUTEROL
     Indication: Chronic obstructive pulmonary disease
     Dosage: 1 INHALATION AS REQUIRED
     Route: 048
     Dates: start: 2021
  7. SPIRIVA RESPIMAT [Concomitant]
     Active Substance: TIOTROPIUM BROMIDE
     Indication: Chronic obstructive pulmonary disease
     Dosage: 2.5MG AS REQUIRED
     Route: 048
     Dates: start: 2021
  8. SYSTANE ULTRA [Concomitant]
     Active Substance: POLYETHYLENE GLYCOL 400\PROPYLENE GLYCOL
     Indication: Dry eye
     Dosage: 1.0DF AS REQUIRED
     Route: 047
     Dates: start: 2018
  9. TYLENOL [Concomitant]
     Active Substance: ACETAMINOPHEN
     Indication: Musculoskeletal chest pain
     Route: 048
     Dates: start: 20220416
  10. SODIUM CHLORIDE [Concomitant]
     Active Substance: SODIUM CHLORIDE
     Indication: Supportive care
     Dosage: 1 DOSE ONCE
     Route: 042
     Dates: start: 20220502, end: 20220502
  11. PREDNISONE [Concomitant]
     Active Substance: PREDNISONE
     Indication: Rhabdomyolysis
     Route: 048
     Dates: start: 20220503, end: 20220510
  12. PREDNISONE [Concomitant]
     Active Substance: PREDNISONE
     Indication: Rhabdomyolysis
     Route: 048
     Dates: start: 20220529, end: 20220609
  13. SODIUM CHLORIDE [Concomitant]
     Active Substance: SODIUM CHLORIDE
     Indication: Rhabdomyolysis
     Dosage: 125 CC PER HOUR
     Route: 042
     Dates: start: 20220503, end: 20220530

REACTIONS (1)
  - Guillain-Barre syndrome [Fatal]

NARRATIVE: CASE EVENT DATE: 20220511
